FAERS Safety Report 6615490-3 (Version None)
Quarter: 2010Q1

REPORT INFORMATION
  Report Type: 
  Country: None (occurrence: None)
  Receive Date: 20100305
  Receipt Date: 20100226
  Transmission Date: 20100710
  Serious: Yes (Life-Threatening, Hospitalization)
  Sender: FDA-Public Use
  Company Number: FR-RB-003562-10

PATIENT
  Age: 28 Year
  Sex: Female

DRUGS (2)
  1. SUBUTEX [Suspect]
     Indication: DRUG USE FOR UNKNOWN INDICATION
     Dosage: DOSING DETAILS UNKNOWN
     Route: 042
     Dates: end: 20030101
  2. LEVONORGESTREL AND ETHINYL ESTRADIOL [Suspect]
     Indication: DRUG USE FOR UNKNOWN INDICATION
     Dosage: DOSING DETAILS UNKNOWN
     Route: 048

REACTIONS (5)
  - CARDIAC FAILURE [None]
  - INCORRECT ROUTE OF DRUG ADMINISTRATION [None]
  - PULMONARY ARTERIAL HYPERTENSION [None]
  - PULMONARY ARTERY THROMBOSIS [None]
  - SUBSTANCE ABUSE [None]
